FAERS Safety Report 6287667-0 (Version None)
Quarter: 2009Q3

REPORT INFORMATION
  Report Type: 
  Country: None (occurrence: None)
  Receive Date: 20090727
  Receipt Date: 20090727
  Transmission Date: 20100115
  Serious: Yes (Other)
  Sender: FDA-Public Use
  Company Number: None

PATIENT
  Age: 75 Year
  Sex: Male
  Weight: 88.6 kg

DRUGS (1)
  1. ZOLPIDEM TARTRATE [Suspect]
     Indication: INSOMNIA
     Dosage: 5-10 MG DAILY, ORAL
     Route: 048
     Dates: start: 20090201, end: 20090420

REACTIONS (2)
  - DRUG INTOLERANCE [None]
  - DYSGEUSIA [None]
